FAERS Safety Report 4979759-0 (Version None)
Quarter: 2006Q2

REPORT INFORMATION
  Report Type: 
  Country: None (occurrence: None)
  Receive Date: 20060418
  Receipt Date: 20060405
  Transmission Date: 20061013
  Serious: Yes (Other)
  Sender: FDA-Public Use
  Company Number: 2006031725

PATIENT
  Age: 37 Year
  Sex: Female
  Weight: 81.6475 kg

DRUGS (9)
  1. NEURONTIN [Suspect]
     Indication: AFFECTIVE DISORDER
     Dosage: 1800 MG (600 MG, 3 IN 1 D), ORAL
     Route: 048
  2. NEURONTIN [Suspect]
     Indication: HEADACHE
     Dosage: 1800 MG (600 MG, 3 IN 1 D), ORAL
     Route: 048
  3. NEURONTIN [Suspect]
     Indication: PAIN
     Dosage: 1800 MG (600 MG, 3 IN 1 D), ORAL
     Route: 048
  4. LORCET-HD [Concomitant]
  5. PHENERGAN [Concomitant]
  6. NORTRIPTYLINE HCL [Concomitant]
  7. PRILOSEC [Concomitant]
  8. INDERAL [Concomitant]
  9. AMITRIPTYLINE HCL [Concomitant]

REACTIONS (16)
  - AFFECTIVE DISORDER [None]
  - ANXIETY [None]
  - ASTHENIA [None]
  - DECREASED APPETITE [None]
  - HALLUCINATIONS, MIXED [None]
  - INSOMNIA [None]
  - IRRITABILITY [None]
  - MAJOR DEPRESSION [None]
  - MEMORY IMPAIRMENT [None]
  - OFF LABEL USE [None]
  - OVERDOSE [None]
  - PANIC ATTACK [None]
  - POLYSUBSTANCE ABUSE [None]
  - SOCIAL AVOIDANT BEHAVIOUR [None]
  - SUICIDE ATTEMPT [None]
  - WEIGHT DECREASED [None]
